FAERS Safety Report 6402377-4 (Version None)
Quarter: 2009Q4

REPORT INFORMATION
  Report Type: 
  Country: None (occurrence: None)
  Receive Date: 20091013
  Receipt Date: 20091006
  Transmission Date: 20100525
  Serious: Yes (Other)
  Sender: FDA-Public Use
  Company Number: 1000007664

PATIENT
  Age: 55 Year
  Sex: Female
  Weight: 127.4608 kg

DRUGS (18)
  1. SAVELLA [Suspect]
     Indication: FIBROMYALGIA
     Dosage: 12.5 MG, (12.5 MG, 1 IN 1 D), ORAL 25 MG (12.5 MG, 2 IN 1 D) ORAL 50 MG (25 MG, 2 IN 1 D), ORAL
     Route: 048
     Dates: start: 20090520, end: 20090520
  2. SAVELLA [Suspect]
     Indication: FIBROMYALGIA
     Dosage: 12.5 MG, (12.5 MG, 1 IN 1 D), ORAL 25 MG (12.5 MG, 2 IN 1 D) ORAL 50 MG (25 MG, 2 IN 1 D), ORAL
     Route: 048
     Dates: start: 20090521, end: 20090522
  3. SAVELLA [Suspect]
     Indication: FIBROMYALGIA
     Dosage: 12.5 MG, (12.5 MG, 1 IN 1 D), ORAL 25 MG (12.5 MG, 2 IN 1 D) ORAL 50 MG (25 MG, 2 IN 1 D), ORAL
     Route: 048
     Dates: start: 20090523, end: 20090526
  4. SAVELLA [Suspect]
     Indication: FIBROMYALGIA
     Dosage: 100 MG (50 MG, 2 IN 1 D), ORAL
     Route: 048
     Dates: start: 20090527, end: 20090101
  5. K-DUR [Concomitant]
  6. LISINOPRIL [Concomitant]
  7. COUMADIN [Concomitant]
  8. ALPRAZOLAM [Concomitant]
  9. AMBIEN [Concomitant]
  10. FLEXERIL [Concomitant]
  11. LORATADINE [Concomitant]
  12. ZAROXOLYN [Concomitant]
  13. VISTARIL [Concomitant]
  14. PLAQUENIL [Concomitant]
  15. NEURONTIN [Concomitant]
  16. LASIX [Concomitant]
  17. SENNA PLUS [Concomitant]
  18. SULINDAC [Concomitant]

REACTIONS (1)
  - HOMICIDAL IDEATION [None]
